FAERS Safety Report 8080873-4 (Version None)
Quarter: 2012Q1

REPORT INFORMATION
  Report Type: 
  Country: None (occurrence: None)
  Receive Date: 20120130
  Receipt Date: 20120120
  Transmission Date: 20120608
  Serious: Yes (Hospitalization)
  Sender: FDA-Public Use
  Company Number: JP-EISAI INC-E7389-01458-SPO-JP

PATIENT
  Sex: Female
  Weight: 47 kg

DRUGS (10)
  1. HALAVEN [Suspect]
     Indication: BREAST CANCER RECURRENT
     Route: 041
     Dates: start: 20110811, end: 20110818
  2. HALAVEN [Suspect]
     Indication: METASTASES TO LUNG
  3. HALAVEN [Suspect]
     Indication: METASTASES TO LYMPH NODES
  4. DECADRON [Concomitant]
     Route: 042
  5. HALAVEN [Suspect]
  6. VITAMEDIN [Concomitant]
     Indication: STOMATITIS
     Route: 048
  7. TYKERB [Concomitant]
     Route: 048
  8. HALAVEN [Suspect]
     Indication: METASTASES TO BREAST
  9. OLOPATADINE HCL [Concomitant]
     Route: 048
  10. MAGNESIUM SULFATE [Concomitant]

REACTIONS (3)
  - FEELING HOT [None]
  - PAIN [None]
  - HEADACHE [None]
